FAERS Safety Report 8756337 (Version 2)
Quarter: 2012Q4

REPORT INFORMATION
  Report Type: 
  Country: US (occurrence: US)
  Receive Date: 20120828
  Receipt Date: 20121018
  Transmission Date: 20130627
  Serious: No
  Sender: FDA-Public Use
  Company Number: US-009507513-1208USA007907

PATIENT
  Sex: Female
  Weight: 62.59 kg

DRUGS (5)
  1. REMERON [Suspect]
     Dosage: UNK mg, UNK
     Route: 048
  2. VICTRELIS [Concomitant]
     Dosage: TAKE 800MG (4 CAPSULES) BY MOUTH THREE TIMES A DAY EVERY 7-9 HOURS START ON WEEK 5
     Route: 048
     Dates: start: 20120718
  3. RIBAPAK [Concomitant]
     Indication: HEPATITIS C
     Dosage: 600 mg, qd
     Route: 048
     Dates: start: 20120613
  4. PEGASYS [Concomitant]
     Dosage: UNK
     Dates: start: 20120613
  5. TYLENOL [Concomitant]
     Dosage: 8 HR
     Route: 048

REACTIONS (1)
  - Drug ineffective [Unknown]
